FAERS Safety Report 25264451 (Version 1)
Quarter: 2025Q2

REPORT INFORMATION
  Report Type: Spontaneous
  Country: US (occurrence: US)
  Receive Date: 20250502
  Receipt Date: 20250502
  Transmission Date: 20250716
  Serious: No
  Sender: JOHNSON AND JOHNSON
  Company Number: US-JNJFOC-20250439548

PATIENT

DRUGS (2)
  1. SPRAVATO [Suspect]
     Active Substance: ESKETAMINE
     Indication: Product used for unknown indication
     Route: 065
  2. LUNESTA [Concomitant]
     Active Substance: ESZOPICLONE

REACTIONS (1)
  - Blunted affect [Unknown]
